FAERS Safety Report 7012931-7 (Version None)
Quarter: 2010Q3

REPORT INFORMATION
  Report Type: 
  Country: None (occurrence: None)
  Receive Date: 20100924
  Receipt Date: 20100913
  Transmission Date: 20110219
  Serious: Yes (Other)
  Sender: FDA-Public Use
  Company Number: US-PFIZER INC-2010116261

PATIENT
  Sex: Female

DRUGS (5)
  1. LYRICA [Suspect]
     Indication: FIBROMYALGIA
     Dosage: 75 MG, 2X/DAY
     Route: 048
     Dates: start: 20080701
  2. MONTELUKAST [Concomitant]
     Indication: HYPERSENSITIVITY
     Dosage: UNK
  3. ASTHALIN [Concomitant]
     Indication: HYPERSENSITIVITY
     Dosage: UNK, 2X/DAY
     Route: 045
  4. DIAZEPAM [Concomitant]
     Indication: ANXIETY
     Dosage: UNK
  5. LEXAPRO [Concomitant]
     Indication: ANXIETY
     Dosage: 10 MG, DAILY

REACTIONS (5)
  - ABDOMINAL PAIN UPPER [None]
  - ANXIETY [None]
  - FALL [None]
  - JOINT SWELLING [None]
  - PAIN [None]
